FAERS Safety Report 4825767-X (Version None)
Quarter: 2005Q4

REPORT INFORMATION
  Report Type: 
  Country: None (occurrence: None)
  Receive Date: 20051109
  Receipt Date: 20051027
  Transmission Date: 20060501
  Serious: Yes (Hospitalization, Other)
  Sender: FDA-Public Use
  Company Number: MEDI-0003713

PATIENT
  Age: 55 Year
  Sex: Female
  Weight: 68.0396 kg

DRUGS (22)
  1. ETHYOL [Suspect]
     Indication: CHEMOTHERAPY
     Dosage: 5 IN 1 WK, SUBCUTANEOUS
     Route: 058
     Dates: start: 20050830, end: 20050919
  2. ETHYOL [Suspect]
     Indication: RADIOTHERAPY
     Dosage: 5 IN 1 WK, SUBCUTANEOUS
     Route: 058
     Dates: start: 20050830, end: 20050919
  3. RADIATION THERAPY [Concomitant]
  4. CARBOPLATIN [Concomitant]
  5. FLUOROURACIL [Concomitant]
  6. ACYCLOVIR [Concomitant]
  7. ROCEPHIN [Concomitant]
  8. DIGOXIN [Concomitant]
  9. FLUCONAZOLE [Concomitant]
  10. INSULIN [Concomitant]
  11. PROTONIX [Concomitant]
  12. CARAFATE [Concomitant]
  13. TOPROL-XL [Concomitant]
  14. ZOFRAN [Concomitant]
  15. REGLAN [Concomitant]
  16. DECADRON [Concomitant]
  17. ALBUTEROL [Concomitant]
  18. CRESTOR [Concomitant]
  19. HYDROCHLOROTHIAZIDE [Concomitant]
  20. SPIRONOLACTONE [Concomitant]
  21. LISINOPRIL [Concomitant]
  22. ASPIRIN [Concomitant]

REACTIONS (29)
  - ANAEMIA [None]
  - ANOREXIA [None]
  - CANCER PAIN [None]
  - CARDIAC FLUTTER [None]
  - CHEST PAIN [None]
  - CHILLS [None]
  - CREATINE PHOSPHOKINASE DECREASED [None]
  - DEHYDRATION [None]
  - DIZZINESS POSTURAL [None]
  - DYSPNOEA [None]
  - ELECTROCARDIOGRAM ST-T CHANGE [None]
  - ERYTHEMA [None]
  - HYPOTENSION [None]
  - LEUKOPENIA [None]
  - MUCOSAL INFLAMMATION [None]
  - MYOCARDIAL INFARCTION [None]
  - NAUSEA [None]
  - NEUTROPENIA [None]
  - NUTRITIONAL CONDITION ABNORMAL [None]
  - ODYNOPHAGIA [None]
  - ORAL PAIN [None]
  - PYREXIA [None]
  - RENAL FAILURE ACUTE [None]
  - RESPIRATORY DISTRESS [None]
  - SEPSIS [None]
  - STOMATITIS [None]
  - THROMBOCYTOPENIA [None]
  - VOMITING [None]
  - WHITE BLOOD CELL COUNT DECREASED [None]
